FAERS Safety Report 12139049 (Version 8)
Quarter: 2016Q2

REPORT INFORMATION
  Report Type: Report from Study
  Country: BR (occurrence: BR)
  Receive Date: 20160302
  Receipt Date: 20160601
  Transmission Date: 20160815
  Serious: Yes (Hospitalization, Other)
  Sender: FDA-Public Use
  Company Number: PHHY2015BR071359

PATIENT
  Age: 49 Year
  Sex: Female
  Weight: 98 kg

DRUGS (25)
  1. XOLAIR [Suspect]
     Active Substance: OMALIZUMAB
     Indication: ASTHMA
     Dosage: 1.5 DF, BIW (1 AMPOULE AND HALF EVERY 15 DAYS)
     Route: 058
     Dates: start: 201302
  2. ALENIA [Concomitant]
     Active Substance: BUDESONIDE\FORMOTEROL FUMARATE
     Dosage: 2 DF, QD (2 ASPIRATIONS A DAY, STARTED 5 YEARS AGO)
     Route: 055
  3. LOSARTAN. [Concomitant]
     Active Substance: LOSARTAN
     Indication: HYPERTENSION
     Dosage: 50 MG, TID (STARTED MANY YEARS AGO)
     Route: 048
  4. FUROSEMIDE. [Concomitant]
     Active Substance: FUROSEMIDE
     Indication: DIURETIC THERAPY
     Dosage: 40 MG, TID (STARTED MANY YEARS AGO)
     Route: 048
  5. CLONAZEPAM. [Concomitant]
     Active Substance: CLONAZEPAM
     Indication: ANXIETY
     Dosage: 2 MG, BID (STARTED 12 YEARS AGO)
     Route: 048
  6. CLONAZEPAM. [Concomitant]
     Active Substance: CLONAZEPAM
     Indication: SLEEP DISORDER
  7. OMEPRAZOLE. [Concomitant]
     Active Substance: OMEPRAZOLE
     Indication: GASTROINTESTINAL DISORDER
     Dosage: 20 MG, BID (STARTED MANY YEARS AGO)
     Route: 048
  8. XOLAIR [Suspect]
     Active Substance: OMALIZUMAB
     Dosage: UNK
     Route: 058
     Dates: end: 20151216
  9. DILTIAZEM [Concomitant]
     Active Substance: DILTIAZEM
     Indication: CARDIAC DISORDER
     Dosage: 60 MG, BID (STARTED 4 YEARS AGO)
     Route: 048
  10. AMITRIPTYLINE [Concomitant]
     Active Substance: AMITRIPTYLINE
     Indication: FIBROMYALGIA
     Dosage: 20 MG, BID (STARTED 12 YEARS AGO)
     Route: 048
  11. XOLAIR [Suspect]
     Active Substance: OMALIZUMAB
     Dosage: 225 MG, EVERY TWO WEEKS
     Route: 058
     Dates: start: 20140212
  12. XOLAIR [Suspect]
     Active Substance: OMALIZUMAB
     Dosage: 1.5 DF, (1 VIAL AND HALF EVERY 15 DAYS, AS REPORTED
     Route: 058
     Dates: start: 201502
  13. METFORMIN [Concomitant]
     Active Substance: METFORMIN HYDROCHLORIDE
     Indication: DIABETES MELLITUS
     Dosage: 850 MG, BID (STARTED 3 YEARS AGO)
     Route: 048
  14. WARFARIN [Concomitant]
     Active Substance: WARFARIN
     Indication: PULMONARY EMBOLISM
     Dosage: 5 MG, TID (5 YEARS AGO)
     Route: 048
  15. BEROTEC [Concomitant]
     Active Substance: FENOTEROL HYDROBROMIDE
     Indication: PRODUCT USED FOR UNKNOWN INDICATION
     Dosage: 30 DRP, UNK (04 VAPORIZATIONS PER DAY (EVERY 6 HOURS))
     Route: 055
     Dates: start: 201601
  16. ALENIA [Concomitant]
     Active Substance: BUDESONIDE\FORMOTEROL FUMARATE
     Indication: ASTHMA
     Dosage: 1 DF (ASPIRATION), BID (STARTED 7 OR 8 YEARS AGO)
     Route: 055
  17. MONOCORDIL [Concomitant]
     Active Substance: ISOSORBIDE MONONITRATE
     Indication: CARDIAC DISORDER
     Dosage: 40 MG, TID (STARTED 4 YEARS AGO)
     Route: 048
  18. ATROVENT [Concomitant]
     Active Substance: IPRATROPIUM BROMIDE
     Indication: PRODUCT USED FOR UNKNOWN INDICATION
     Dosage: 10 DRP, UNK (04 VAPORIZATIONS PER DAY (EVERY 6 HOURS))
     Route: 055
     Dates: start: 201601
  19. XOLAIR [Suspect]
     Active Substance: OMALIZUMAB
     Dosage: 225 MG, BIW (EVERY 2 WEEKS)
     Route: 058
     Dates: start: 20150223
  20. XOLAIR [Suspect]
     Active Substance: OMALIZUMAB
     Dosage: 150 MG, EVERY 15 DAYS
     Route: 058
     Dates: start: 20150326
  21. AMLODIPINE [Concomitant]
     Active Substance: AMLODIPINE BESYLATE
     Indication: HYPERTENSION
     Dosage: 20 MG, TID (STARTED 4 YEARS AGO)
     Route: 048
  22. XOLAIR [Suspect]
     Active Substance: OMALIZUMAB
     Dosage: 150 MG, EVERY 15 DAYS
     Route: 058
     Dates: start: 20150507
  23. SEEBRI BREEZHALER [Suspect]
     Active Substance: GLYCOPYRROLATE
     Indication: PRODUCT USED FOR UNKNOWN INDICATION
     Dosage: 2 DF, QD (2 INHALATIONS PER DAY)
     Route: 055
  24. GLIBENCLAMIDE [Concomitant]
     Active Substance: GLYBURIDE
     Indication: DIABETES MELLITUS
     Dosage: 5 MG, BID (STARTED 3 MONTHS AGO)
     Route: 048
  25. FLUOXETINE [Concomitant]
     Active Substance: FLUOXETINE HYDROCHLORIDE
     Indication: FIBROMYALGIA
     Dosage: 20 MG, BID (STARTED 12 YEARS AGO)
     Route: 048

REACTIONS (14)
  - Dyspnoea [Unknown]
  - Cough [Not Recovered/Not Resolved]
  - H1N1 influenza [Recovered/Resolved]
  - Platelet count decreased [Recovering/Resolving]
  - Pneumonia [Not Recovered/Not Resolved]
  - Back pain [Recovering/Resolving]
  - Asthma [Recovering/Resolving]
  - Fatigue [Not Recovered/Not Resolved]
  - Cardiac arrest [Recovering/Resolving]
  - Pyrexia [Recovered/Resolved]
  - Dengue fever [Recovering/Resolving]
  - Wheezing [Unknown]
  - Headache [Recovering/Resolving]
  - Filovirus infection [Recovering/Resolving]

NARRATIVE: CASE EVENT DATE: 20151228
